FAERS Safety Report 12397625 (Version 1)
Quarter: 2016Q2

REPORT INFORMATION
  Report Type: Spontaneous
  Country: US (occurrence: None)
  Receive Date: 20160523
  Receipt Date: 20160523
  Transmission Date: 20160815
  Serious: No
  Sender: FDA-Public Use
  Company Number: None

PATIENT
  Age: 77 Year
  Sex: Male

DRUGS (1)
  1. ZYTIGA [Suspect]
     Active Substance: ABIRATERONE ACETATE

REACTIONS (5)
  - Fatigue [None]
  - Confusional state [None]
  - Escherichia urinary tract infection [None]
  - Balance disorder [None]
  - Blood urine present [None]

NARRATIVE: CASE EVENT DATE: 20160509
